FAERS Safety Report 4293118-8 (Version None)
Quarter: 2004Q1

REPORT INFORMATION
  Report Type: 
  Country: None (occurrence: None)
  Receive Date: 20040212
  Receipt Date: 20030417
  Transmission Date: 20041129
  Serious: No
  Sender: FDA-Public Use
  Company Number: US-GLAXOSMITHKLINE-A0405381A

PATIENT
  Age: 65 Year
  Sex: Female

DRUGS (3)
  1. PAXIL [Suspect]
     Indication: PANIC ATTACK
     Dosage: 20MG PER DAY
     Route: 048
     Dates: start: 20010101
  2. SYNTHROID [Concomitant]
  3. ATENOLOL [Concomitant]

REACTIONS (1)
  - TINNITUS [None]
